FAERS Safety Report 6337588-X (Version None)
Quarter: 2009Q3

REPORT INFORMATION
  Report Type: 
  Country: None (occurrence: None)
  Receive Date: 20090902
  Receipt Date: 20090821
  Transmission Date: 20100115
  Serious: Yes (Death)
  Sender: FDA-Public Use
  Company Number: AT-ROCHE-651958

PATIENT
  Sex: Male
  Weight: 65 kg

DRUGS (2)
  1. ROACCUTAN [Suspect]
     Indication: ACNE
     Route: 065
     Dates: start: 20020101, end: 20030101
  2. CISCUTAN [Suspect]
     Indication: ACNE
     Dosage: DRUG REPORTED AS CICCUTAN
     Route: 065
     Dates: start: 20060101, end: 20070101

REACTIONS (1)
  - COMPLETED SUICIDE [None]
